FAERS Safety Report 7955519-3 (Version None)
Quarter: 2011Q4

REPORT INFORMATION
  Report Type: 
  Country: None (occurrence: None)
  Receive Date: 20111202
  Receipt Date: 20111129
  Transmission Date: 20120403
  Serious: Yes (Hospitalization)
  Sender: FDA-Public Use
  Company Number: FR-MERCK-1112FRA00007

PATIENT
  Age: 44 Year
  Sex: Male

DRUGS (3)
  1. NEORAL [Suspect]
     Route: 065
  2. IMURAN [Concomitant]
     Route: 065
  3. CANCIDAS [Suspect]
     Indication: CANDIDIASIS
     Route: 042
     Dates: start: 20110101, end: 20110101

REACTIONS (2)
  - DEEP VEIN THROMBOSIS [None]
  - THROMBOTIC MICROANGIOPATHY [None]
